FAERS Safety Report 16451241 (Version 1)
Quarter: 2019Q2

REPORT INFORMATION
  Report Type: Spontaneous
  Country: US (occurrence: US)
  Receive Date: 20190509
  Receipt Date: 20190509
  Transmission Date: 20190711
  Serious: No
  Sender: FDA-Public Use
  Company Number: None

PATIENT
  Age: 59 Year
  Sex: Female

DRUGS (1)
  1. LETAIRIS [Suspect]
     Active Substance: AMBRISENTAN
     Indication: HEART DISEASE CONGENITAL
     Route: 048
     Dates: start: 20190314, end: 20190419

REACTIONS (7)
  - Peripheral swelling [None]
  - Malaise [None]
  - Iron deficiency anaemia [None]
  - Abdominal pain upper [None]
  - Condition aggravated [None]
  - Joint swelling [None]
  - Sinus disorder [None]

NARRATIVE: CASE EVENT DATE: 20190416
